FAERS Safety Report 7655874-8 (Version None)
Quarter: 2011Q3

REPORT INFORMATION
  Report Type: 
  Country: None (occurrence: None)
  Receive Date: 20110801
  Receipt Date: 20110726
  Transmission Date: 20111222
  Serious: Yes (Life-Threatening, Other)
  Sender: FDA-Public Use
  Company Number: 201110941

PATIENT
  Sex: Female

DRUGS (1)
  1. LIORESAL [Suspect]
     Indication: MUSCLE SPASTICITY
     Dosage: UNK MCG, DAILY, INTRATHECAL
     Route: 037

REACTIONS (9)
  - DEVICE INVERSION [None]
  - HEADACHE [None]
  - RESPIRATORY FAILURE [None]
  - POST LUMBAR PUNCTURE SYNDROME [None]
  - BACK PAIN [None]
  - CONDITION AGGRAVATED [None]
  - SCAR [None]
  - UNRESPONSIVE TO STIMULI [None]
  - SEROMA [None]
